FAERS Safety Report 8890882 (Version 2)
Quarter: 2013Q3

REPORT INFORMATION
  Report Type: Spontaneous
  Country: FR (occurrence: FR)
  Receive Date: 20121107
  Receipt Date: 20130725
  Transmission Date: 20140515
  Serious: Yes (Life-Threatening, Hospitalization, Other)
  Sender: FDA-Public Use
  Company Number: PHHY2012FR101763

PATIENT
  Age: 67 Year
  Sex: Female

DRUGS (23)
  1. NEORAL [Suspect]
     Indication: RENAL TRANSPLANT
     Dosage: 125 MG, QD
     Route: 048
     Dates: start: 2000
  2. MORPHINE [Suspect]
     Indication: LUMBAR VERTEBRAL FRACTURE
  3. EFFEXOR [Suspect]
     Indication: DEPRESSION
     Dosage: 1 DF, DAILY
     Route: 048
     Dates: end: 20120722
  4. IMIPENEM CILASTATINE PANPHARMA [Suspect]
     Dosage: 500 MG, QID
     Route: 042
  5. TOPALGIC [Suspect]
     Indication: PAIN
     Dosage: 2 DF, DAILY
     Route: 048
  6. ACUPAN [Suspect]
     Indication: PAIN
     Route: 042
  7. CORTANCYL [Concomitant]
  8. HYDROCORTISONE ^ROUSSEL^ [Concomitant]
  9. ARANESP [Concomitant]
  10. CALTRATE [Concomitant]
  11. UN ALFA [Concomitant]
  12. MIMPARA [Concomitant]
  13. LASILIX [Concomitant]
  14. DIFFU-K [Concomitant]
  15. AMLOR [Concomitant]
  16. TENORMINE [Concomitant]
  17. GENTAMICIN [Concomitant]
     Route: 042
     Dates: start: 20120719
  18. CORDARONE [Concomitant]
  19. TAHOR [Concomitant]
  20. GAVISCON [Concomitant]
  21. MOTILIUM [Concomitant]
  22. DUPHALAC [Concomitant]
  23. CALCIPARINE [Concomitant]

REACTIONS (22)
  - Pyrexia [Unknown]
  - Urosepsis [Unknown]
  - Arrhythmia [Unknown]
  - Pyelonephritis [Unknown]
  - Encephalopathy [Unknown]
  - Grand mal convulsion [Unknown]
  - Status epilepticus [Unknown]
  - Dyskinesia [Recovered/Resolved]
  - Confusional state [Unknown]
  - Disturbance in attention [Recovering/Resolving]
  - Tremor [Unknown]
  - Acute pulmonary oedema [Unknown]
  - Oxygen saturation decreased [Unknown]
  - Dyspnoea [Unknown]
  - Systemic inflammatory response syndrome [Unknown]
  - Atrial fibrillation [Unknown]
  - Subileus [Unknown]
  - Electrolyte imbalance [Unknown]
  - Hyponatraemia [Unknown]
  - Hypocalcaemia [Unknown]
  - Pneumonia klebsiella [Unknown]
  - Renal impairment [Unknown]
